FAERS Safety Report 4352851-X (Version None)
Quarter: 2004Q2

REPORT INFORMATION
  Report Type: 
  Country: None (occurrence: None)
  Receive Date: 20040430
  Receipt Date: 20040217
  Transmission Date: 20050107
  Serious: No
  Sender: FDA-Public Use
  Company Number: 204775

PATIENT
  Age: 69 Year
  Sex: Female

DRUGS (8)
  1. XOLAIR [Suspect]
     Indication: ASTHMA
     Dosage: 300 MG, Q2W, SUBCUTANEOUS
     Route: 058
     Dates: start: 20031111
  2. COZAAR [Concomitant]
  3. SINGULAIR [Concomitant]
  4. PROTONIX [Concomitant]
  5. ACTONEL [Concomitant]
  6. ZYRTEC [Concomitant]
  7. LIPITOR [Concomitant]
  8. PREDNISONE [Concomitant]

REACTIONS (1)
  - COUGH [None]
